FAERS Safety Report 17539447 (Version 1)
Quarter: 2020Q1

REPORT INFORMATION
  Report Type: Spontaneous
  Country: US (occurrence: US)
  Receive Date: 20200313
  Receipt Date: 20200313
  Transmission Date: 20200409
  Serious: No
  Sender: FDA-Public Use
  Company Number: None

PATIENT
  Age: 69 Year
  Sex: Female

DRUGS (6)
  1. AMLODIPINE [Concomitant]
     Active Substance: AMLODIPINE BESYLATE
  2. ZOLPIDEM [Concomitant]
     Active Substance: ZOLPIDEM TARTRATE
  3. ESTRADIOL 10MCG VAGINAL [Concomitant]
  4. SUMATRIPTAN 25MG [Concomitant]
  5. LORAZEPAM 0.5MG [Concomitant]
     Active Substance: LORAZEPAM
  6. MAVYRET [Suspect]
     Active Substance: GLECAPREVIR\PIBRENTASVIR
     Indication: HEPATITIS C
     Route: 048
     Dates: start: 20191022, end: 20191217

REACTIONS (2)
  - Constipation [None]
  - Blood pressure fluctuation [None]

NARRATIVE: CASE EVENT DATE: 20200313
